FAERS Safety Report 9506377 (Version 1)
Quarter: 2013Q1

REPORT INFORMATION
  Report Type: Spontaneous
  Country: US (occurrence: None)
  Receive Date: 20130301
  Receipt Date: 20130301
  Transmission Date: 20140127
  Serious: Yes (Hospitalization, Other)
  Sender: FDA-Public Use
  Company Number: RB-47738-2012

PATIENT
  Age: 27 Year
  Sex: Female

DRUGS (2)
  1. SUBOXONE [Suspect]
     Indication: DRUG DEPENDENCE
     Dates: start: 2007
  2. XANAX [Suspect]
     Indication: ANXIETY
     Route: 048
     Dates: end: 2008

REACTIONS (1)
  - Convulsion [None]
